FAERS Safety Report 25985973 (Version 2)
Quarter: 2025Q4

REPORT INFORMATION
  Report Type: Report from Study
  Country: US (occurrence: US)
  Receive Date: 20251031
  Receipt Date: 20251124
  Transmission Date: 20260118
  Serious: No
  Sender: MALLINCKRODT
  Company Number: US-MALLINCKRODT-MNK202506742

PATIENT
  Age: 51 Year
  Sex: Female
  Weight: 187 kg

DRUGS (3)
  1. CORTICOTROPIN [Suspect]
     Active Substance: CORTICOTROPIN
     Indication: Iridocyclitis
     Route: 058
     Dates: start: 20251024, end: 20251108
  2. SAPHNELO [Concomitant]
     Active Substance: ANIFROLUMAB-FNIA
     Dosage: UNKNOWN
  3. OZEMPIC [Concomitant]
     Active Substance: SEMAGLUTIDE
     Dosage: 0.25 OR 0.5 MG

REACTIONS (3)
  - Chest discomfort [Unknown]
  - Joint swelling [Unknown]
  - Wrong technique in product usage process [Unknown]

NARRATIVE: CASE EVENT DATE: 20250101
